FAERS Safety Report 5458527-X (Version None)
Quarter: 2007Q3

REPORT INFORMATION
  Report Type: 
  Country: None (occurrence: None)
  Receive Date: 20070813
  Receipt Date: 20070108
  Transmission Date: 20080115
  Serious: No
  Sender: FDA-Public Use
  Company Number: 20073612

PATIENT
  Sex: Female

DRUGS (7)
  1. LIORESAL [Suspect]
     Indication: MUSCLE SPASTICITY
     Dosage: 1.6 MCG, DAILY, INTRATHECAL
     Route: 037
  2. HYDROMORPHONE 40 MG/ML [Concomitant]
  3. PRIALT 5 MG/ML [Concomitant]
  4. AVELOX [Concomitant]
  5. EVISTA [Concomitant]
  6. GABAPENTIN [Concomitant]
  7. LYRICA [Concomitant]

REACTIONS (3)
  - GAIT DISTURBANCE [None]
  - HYPOTONIA [None]
  - PARAESTHESIA [None]
